FAERS Safety Report 7676543-4 (Version None)
Quarter: 2011Q3

REPORT INFORMATION
  Report Type: 
  Country: None (occurrence: None)
  Receive Date: 20110805
  Receipt Date: 20110725
  Transmission Date: 20111222
  Serious: Yes (Hospitalization)
  Sender: FDA-Public Use
  Company Number: 2011CH0223

PATIENT
  Age: 27 Year
  Sex: Female

DRUGS (5)
  1. CALCIUM CARBONATE WITH VITAMIN D3 (CALCIUM CARBONATE, VITAMIN D3) [Concomitant]
  2. PREDNISOLONE [Concomitant]
  3. ANAKINRA(ANAKINRA) [Suspect]
     Indication: STILL'S DISEASE ADULT ONSET
     Dosage: 100 MG (100 MG, 1 IN 1 D)
  4. ESOMEPRAZOLE (ESOMEPRAZOLE) [Concomitant]
  5. INDOMETHACIN [Concomitant]

REACTIONS (11)
  - GLOMERULONEPHRITIS [None]
  - PALPITATIONS [None]
  - BLOOD PRESSURE INCREASED [None]
  - SINUS TACHYCARDIA [None]
  - VENOUS PRESSURE JUGULAR INCREASED [None]
  - OEDEMA PERIPHERAL [None]
  - SOMNOLENCE [None]
  - PNEUMONIA LEGIONELLA [None]
  - RENAL FAILURE ACUTE [None]
  - HAEMOPTYSIS [None]
  - ANXIETY [None]
